FAERS Safety Report 4395399-9 (Version None)
Quarter: 2004Q3

REPORT INFORMATION
  Report Type: 
  Country: None (occurrence: None)
  Receive Date: 20040712
  Receipt Date: 20040712
  Transmission Date: 20050211
  Serious: Yes (Hospitalization)
  Sender: FDA-Public Use
  Company Number: None

PATIENT
  Age: 97 Year
  Sex: Male

DRUGS (11)
  1. TEQUIN [Suspect]
     Indication: DYSPNOEA
     Dosage: 200 MG QD INTRAVENOUS
     Route: 042
     Dates: start: 20040516, end: 20040518
  2. TEQUIN [Suspect]
     Indication: PYREXIA
     Dosage: 200 MG QD INTRAVENOUS
     Route: 042
     Dates: start: 20040516, end: 20040518
  3. TEQUIN [Suspect]
     Dosage: 400 MG QD INTRAVENOUS
     Route: 042
  4. ZITHROMAX [Concomitant]
  5. SYNTHROID [Concomitant]
  6. FLOMAX [Concomitant]
  7. CEFEPIME [Concomitant]
  8. MEGACE [Concomitant]
  9. LISINOPRIL [Concomitant]
  10. HALDOL [Concomitant]
  11. AMBIEN [Concomitant]

REACTIONS (1)
  - HYPERGLYCAEMIA [None]
